FAERS Safety Report 25799342 (Version 3)
Quarter: 2025Q4

REPORT INFORMATION
  Report Type: Report from Study
  Country: US (occurrence: US)
  Receive Date: 20250913
  Receipt Date: 20251211
  Transmission Date: 20260118
  Serious: Yes (Other)
  Sender: TRAVERE THERAPEUTICS
  Company Number: US-TRAVERE-2025TVT01132

PATIENT
  Age: 34 Year
  Sex: Male
  Weight: 86.18 kg

DRUGS (14)
  1. FILSPARI [Suspect]
     Active Substance: SPARSENTAN
     Indication: IgA nephropathy
     Dosage: 1 TAB MOUTH DAILY FOR 14 DAYS, THEN 2 FOR 16 DAYS
     Route: 048
     Dates: end: 20250701
  2. FILSPARI [Suspect]
     Active Substance: SPARSENTAN
     Route: 048
     Dates: end: 20250721
  3. FILSPARI [Suspect]
     Active Substance: SPARSENTAN
     Route: 048
  4. FILSPARI [Suspect]
     Active Substance: SPARSENTAN
     Route: 048
  5. TARPEYO [Suspect]
     Active Substance: BUDESONIDE
     Indication: Product used for unknown indication
     Route: 048
     Dates: start: 20240916, end: 20250428
  6. LIPITOR [Concomitant]
     Active Substance: ATORVASTATIN CALCIUM
     Route: 048
     Dates: start: 20220621
  7. FARXIGA [Concomitant]
     Active Substance: DAPAGLIFLOZIN PROPANEDIOL
     Route: 048
     Dates: start: 20220719
  8. FARXIGA [Concomitant]
     Active Substance: DAPAGLIFLOZIN PROPANEDIOL
     Route: 048
     Dates: start: 20240917
  9. OMEGA-3 FATTY ACIDS [Concomitant]
     Active Substance: OMEGA-3 FATTY ACIDS
     Dates: start: 20220721
  10. ALDACTONE [Concomitant]
     Active Substance: SPIRONOLACTONE
     Dates: start: 20220721
  11. LISINOPRIL [Concomitant]
     Active Substance: LISINOPRIL
     Dates: start: 20220721
  12. LEVOFLOXACIN [Concomitant]
     Active Substance: LEVOFLOXACIN
     Dates: start: 20220721
  13. DIFLUCAN [Concomitant]
     Active Substance: FLUCONAZOLE
     Dates: start: 20220721
  14. VITAMIN D3 [Concomitant]
     Active Substance: CHOLECALCIFEROL
     Dates: start: 20220721

REACTIONS (6)
  - Urine protein/creatinine ratio increased [Unknown]
  - Fatigue [Unknown]
  - Pain [Unknown]
  - Mean cell haemoglobin concentration decreased [Unknown]
  - Glucose urine present [Unknown]
  - Blood parathyroid hormone increased [Unknown]

NARRATIVE: CASE EVENT DATE: 20250630
